FAERS Safety Report 8831094 (Version 4)
Quarter: 2013Q2

REPORT INFORMATION
  Report Type: Report from Study
  Country: CA (occurrence: CA)
  Receive Date: 20121009
  Receipt Date: 20130415
  Transmission Date: 20140414
  Serious: Yes (Hospitalization, Other)
  Sender: FDA-Public Use
  Company Number: PHHY2012CA088113

PATIENT
  Sex: Male

DRUGS (2)
  1. CLOZARIL [Suspect]
     Dosage: UNK UKN, UNK
     Route: 048
     Dates: start: 20061005
  2. R-CHOP [Concomitant]

REACTIONS (4)
  - Terminal state [Not Recovered/Not Resolved]
  - Neoplasm malignant [Unknown]
  - Neutropenia [Recovered/Resolved]
  - White blood cell count decreased [Not Recovered/Not Resolved]
